FAERS Safety Report 8007222-1 (Version None)
Quarter: 2011Q4

REPORT INFORMATION
  Report Type: 
  Country: None (occurrence: None)
  Receive Date: 20111227
  Receipt Date: 20111222
  Transmission Date: 20120403
  Serious: Yes (Life-Threatening, Hospitalization, Other)
  Sender: FDA-Public Use
  Company Number: JP-PFIZER INC-2011297826

PATIENT
  Age: 16 Year
  Sex: Female
  Weight: 17 kg

DRUGS (12)
  1. CIPROFLOXACIN HCL [Concomitant]
     Indication: SEPSIS
     Dosage: 150 MG, 1X/DAY
     Route: 041
     Dates: start: 20111128, end: 20111211
  2. CLINDAMYCIN HCL [Suspect]
     Dosage: UNK
     Route: 042
     Dates: start: 20111202
  3. ARGININE [Concomitant]
     Dosage: 8 G, 1X/DAY
     Route: 041
     Dates: start: 20111109
  4. VFEND [Concomitant]
     Indication: PNEUMONIA FUNGAL
     Dosage: 65 MG, 2X/DAY
     Route: 041
     Dates: start: 20111203
  5. OMEPRAZOLE [Concomitant]
     Indication: GASTRITIS
     Dosage: 1/4 AMPULE
     Route: 042
     Dates: start: 20111104
  6. MICAFUNGIN SODIUM [Concomitant]
     Indication: PNEUMONIA FUNGAL
     Dosage: 100 MG, 1X/DAY
     Route: 041
     Dates: start: 20111109, end: 20111208
  7. BIOTIN [Concomitant]
     Indication: ANTIMITOCHONDRIAL ANTIBODY POSITIVE
     Dosage: 6.7 MG, 3X/DAY
     Route: 048
     Dates: start: 20111109
  8. ADEROXAL [Concomitant]
     Indication: ANTIMITOCHONDRIAL ANTIBODY POSITIVE
     Dosage: 20 MG, 3X/DAY
     Route: 048
     Dates: start: 20111109
  9. SULFAMETHOXAZOLE AND TRIMETHOPRIM [Concomitant]
     Indication: PNEUMONIA FUNGAL
     Dosage: 1 G, 3X/DAY
     Route: 048
     Dates: start: 20111120
  10. IMMUNE GLOBULIN INTRAVENOUS (HUMAN) [Concomitant]
     Indication: SEPSIS
     Dosage: 10 G, 1X/DAY
     Route: 041
     Dates: start: 20111109
  11. NEUQUINON [Concomitant]
     Indication: ANTIMITOCHONDRIAL ANTIBODY POSITIVE
     Dosage: 30 MG, 3X/DAY
     Route: 048
     Dates: start: 20111109
  12. WASSER V GRAN. [Concomitant]
     Indication: ANTIMITOCHONDRIAL ANTIBODY POSITIVE
     Dosage: 0.07 MG, 3X/DAY
     Route: 048
     Dates: start: 20111109

REACTIONS (5)
  - DIABETES MELLITUS [None]
  - RASH [None]
  - ANAPHYLACTIC SHOCK [None]
  - CARDIAC ARREST [None]
  - BLOOD PRESSURE DECREASED [None]
